FAERS Safety Report 10889749 (Version 2)
Quarter: 2015Q2

REPORT INFORMATION
  Report Type: Spontaneous
  Country: US (occurrence: US)
  Receive Date: 20150306
  Receipt Date: 20150417
  Transmission Date: 20150821
  Serious: Yes (Hospitalization, Other)
  Sender: FDA-Public Use
  Company Number: US-AMGEN-USASP2015020334

PATIENT
  Age: 66 Year
  Sex: Female

DRUGS (1)
  1. ENBREL [Suspect]
     Active Substance: ETANERCEPT
     Indication: PSORIATIC ARTHROPATHY
     Dosage: 50 MG, QWK
     Route: 065
     Dates: start: 20141115

REACTIONS (8)
  - Foot deformity [Recovered/Resolved]
  - Gait disturbance [Not Recovered/Not Resolved]
  - Wound [Recovered/Resolved]
  - Bacterial infection [Recovered/Resolved]
  - Hyperkeratosis [Recovered/Resolved]
  - Pain in extremity [Recovered/Resolved]
  - Toe operation [Recovered/Resolved]
  - Procedural pain [Not Recovered/Not Resolved]

NARRATIVE: CASE EVENT DATE: 201412
